FAERS Safety Report 14311770 (Version 5)
Quarter: 2018Q3

REPORT INFORMATION
  Report Type: Report from Study
  Country: None (occurrence: UY)
  Receive Date: 20171221
  Receipt Date: 20180912
  Transmission Date: 20181010
  Serious: Yes (Other)
  Sender: FDA-Public Use
  Company Number: UY-ABBVIE-17K-168-2176199-00

PATIENT
  Age: 17 Year
  Sex: Female

DRUGS (3)
  1. HUMIRA [Suspect]
     Active Substance: ADALIMUMAB
     Indication: CROHN^S DISEASE
     Route: 058
     Dates: start: 20160113
  2. HUMIRA [Suspect]
     Active Substance: ADALIMUMAB
     Indication: CROHN^S DISEASE
     Route: 058
     Dates: start: 2017, end: 2017
  3. HUMIRA [Suspect]
     Active Substance: ADALIMUMAB
     Route: 058
     Dates: end: 20180727

REACTIONS (8)
  - Gingivitis ulcerative [Recovered/Resolved]
  - Dyspepsia [Recovered/Resolved]
  - Hypophagia [Unknown]
  - Throat lesion [Recovered/Resolved]
  - Insomnia [Unknown]
  - Pemphigoid [Not Recovered/Not Resolved]
  - Incision site ulcer [Not Recovered/Not Resolved]
  - Intestinal ulcer [Unknown]

NARRATIVE: CASE EVENT DATE: 2017
